FAERS Safety Report 20544252 (Version 2)
Quarter: 2022Q1

REPORT INFORMATION
  Report Type: Report from Study
  Country: US (occurrence: None)
  Receive Date: 20220303
  Receipt Date: 20220314
  Transmission Date: 20220424
  Serious: Yes (Other)
  Sender: FDA-Public Use
  Company Number: US-ROCHE-3031590

PATIENT

DRUGS (1)
  1. ATEZOLIZUMAB [Suspect]
     Active Substance: ATEZOLIZUMAB
     Indication: Small cell lung cancer extensive stage
     Route: 041

REACTIONS (4)
  - Infection [Unknown]
  - Atrial fibrillation [Unknown]
  - Encephalopathy [Unknown]
  - Hypotension [Unknown]

NARRATIVE: CASE EVENT DATE: 20220106
